FAERS Safety Report 17963366 (Version 9)
Quarter: 2025Q2

REPORT INFORMATION
  Report Type: Spontaneous
  Country: CA (occurrence: CA)
  Receive Date: 20200630
  Receipt Date: 20250602
  Transmission Date: 20250716
  Serious: Yes (Hospitalization, Disabling, Other)
  Sender: NOVARTIS
  Company Number: NVSC2020CA182940

PATIENT
  Age: 50 Year
  Sex: Male

DRUGS (124)
  1. LORAZEPAM [Suspect]
     Active Substance: LORAZEPAM
     Indication: Product used for unknown indication
     Route: 065
  2. TOBRAMYCIN [Suspect]
     Active Substance: TOBRAMYCIN
     Indication: Product used for unknown indication
     Dosage: 160 MG, BID
     Route: 055
  3. TOBRAMYCIN [Suspect]
     Active Substance: TOBRAMYCIN
     Dosage: 160 MG, BID
     Route: 055
  4. TOBRAMYCIN [Suspect]
     Active Substance: TOBRAMYCIN
     Dosage: 320 MG, QD
     Route: 065
  5. TOBRAMYCIN [Suspect]
     Active Substance: TOBRAMYCIN
     Dosage: 320 MG, QD
     Route: 065
  6. OMEPRAZOLE [Suspect]
     Active Substance: OMEPRAZOLE
     Indication: Product used for unknown indication
     Route: 048
  7. OMEPRAZOLE [Suspect]
     Active Substance: OMEPRAZOLE
     Route: 048
  8. VITAMIN B12 [Suspect]
     Active Substance: CYANOCOBALAMIN
     Indication: Product used for unknown indication
     Dosage: 10 MG, QD
     Route: 065
  9. VITAMIN B12 [Suspect]
     Active Substance: CYANOCOBALAMIN
     Route: 065
  10. VITAMIN B12 [Suspect]
     Active Substance: CYANOCOBALAMIN
     Route: 065
  11. VITAMIN K1 [Suspect]
     Active Substance: PHYTONADIONE
     Indication: Product used for unknown indication
     Dosage: 10 MG, QD
     Route: 065
  12. VITAMIN K1 [Suspect]
     Active Substance: PHYTONADIONE
     Dosage: 400 MG, QD
     Route: 065
  13. VITAMIN D3 [Suspect]
     Active Substance: CHOLECALCIFEROL
     Indication: Product used for unknown indication
     Dosage: 20000 UG, QD
     Route: 065
  14. VITAMIN D3 [Suspect]
     Active Substance: CHOLECALCIFEROL
     Dosage: 20000 MG, QD
     Route: 065
  15. ALBUTEROL [Suspect]
     Active Substance: ALBUTEROL
     Indication: Asthma
     Route: 065
  16. ALBUTEROL [Suspect]
     Active Substance: ALBUTEROL
     Dosage: 5 DOSAGE FORM, BID
     Route: 065
  17. ALBUTEROL [Suspect]
     Active Substance: ALBUTEROL
     Dosage: 5 DOSAGE FORM, BID
     Route: 065
  18. ALBUTEROL [Suspect]
     Active Substance: ALBUTEROL
     Route: 065
  19. CYANOCOBALAMIN [Suspect]
     Active Substance: CYANOCOBALAMIN
     Indication: Product used for unknown indication
     Dosage: 10 MG, QD
     Route: 065
  20. ASPIRIN [Suspect]
     Active Substance: ASPIRIN
     Indication: Product used for unknown indication
     Route: 065
  21. FISH OIL [Suspect]
     Active Substance: FISH OIL
     Indication: Product used for unknown indication
     Route: 065
  22. OMEGA-3 ACIDS [Suspect]
     Active Substance: OMEGA-3 FATTY ACIDS
     Indication: Product used for unknown indication
     Route: 065
  23. OMEGA-3 ACIDS [Suspect]
     Active Substance: OMEGA-3 FATTY ACIDS
     Route: 065
  24. OMEGA-3 ACIDS [Suspect]
     Active Substance: OMEGA-3 FATTY ACIDS
     Dosage: 5 MG, QD
     Route: 065
  25. OMEGA-3 ACIDS [Suspect]
     Active Substance: OMEGA-3 FATTY ACIDS
     Dosage: 3 MG, QD
     Route: 065
  26. OMEPRAZOLE SODIUM [Suspect]
     Active Substance: OMEPRAZOLE SODIUM
     Indication: Product used for unknown indication
     Route: 065
  27. UNSPECIFIED INGREDIENT [Suspect]
     Active Substance: UNSPECIFIED INGREDIENT
     Indication: Product used for unknown indication
     Route: 065
  28. ADVAIR HFA [Suspect]
     Active Substance: FLUTICASONE PROPIONATE\SALMETEROL XINAFOATE
     Indication: Asthma
     Dosage: 2 DF, BID (1 EVERY 12 HOURS)
     Route: 065
  29. ADVAIR HFA [Suspect]
     Active Substance: FLUTICASONE PROPIONATE\SALMETEROL XINAFOATE
     Indication: Product used for unknown indication
     Dosage: 4 DF, QD
     Route: 065
  30. ADVAIR HFA [Suspect]
     Active Substance: FLUTICASONE PROPIONATE\SALMETEROL XINAFOATE
     Dosage: 2 DOSAGE FORM, Q12H
     Route: 065
  31. ADVAIR HFA [Suspect]
     Active Substance: FLUTICASONE PROPIONATE\SALMETEROL XINAFOATE
     Dosage: 2 DOSAGE FORM, Q12H
     Route: 065
  32. ADVAIR HFA [Suspect]
     Active Substance: FLUTICASONE PROPIONATE\SALMETEROL XINAFOATE
     Dosage: 4 DOSAGE FORM, QD
     Route: 065
  33. ADVAIR HFA [Suspect]
     Active Substance: FLUTICASONE PROPIONATE\SALMETEROL XINAFOATE
     Route: 065
  34. ERGOCALCIFEROL [Suspect]
     Active Substance: ERGOCALCIFEROL
     Indication: Product used for unknown indication
     Dosage: 2000 MG, QD
     Route: 065
  35. TOBRAMYCIN SULFATE [Suspect]
     Active Substance: TOBRAMYCIN SULFATE
     Indication: Product used for unknown indication
     Dosage: 320 MG, QD
     Route: 065
  36. DOXYCYCLINE [Suspect]
     Active Substance: DOXYCYCLINE
     Indication: Product used for unknown indication
     Dosage: 100 MG, BID (1 EVERY 12 HOURS)
     Route: 065
  37. DOXYCYCLINE [Suspect]
     Active Substance: DOXYCYCLINE
     Dosage: 200 MG, QD
     Route: 065
  38. GLUCOSAMINE [Suspect]
     Active Substance: GLUCOSAMINE
     Indication: Product used for unknown indication
     Route: 065
  39. ALBUTEROL [Suspect]
     Active Substance: ALBUTEROL
     Indication: Asthma
     Route: 065
  40. ALBUTEROL [Suspect]
     Active Substance: ALBUTEROL
     Dosage: 5 DOSAGE FORM, BID
     Route: 065
  41. ALBUTEROL [Suspect]
     Active Substance: ALBUTEROL
     Dosage: 5 DOSAGE FORM, Q12H
     Route: 065
  42. ALBUTEROL [Suspect]
     Active Substance: ALBUTEROL
     Route: 065
  43. ALBUTEROL [Suspect]
     Active Substance: ALBUTEROL
     Route: 065
  44. MEPOLIZUMAB [Suspect]
     Active Substance: MEPOLIZUMAB
     Indication: Asthma
     Dosage: 100 MG, QMO
     Route: 042
  45. MEPOLIZUMAB [Suspect]
     Active Substance: MEPOLIZUMAB
     Indication: Product used for unknown indication
     Dosage: 100 MG, QMO
     Route: 042
  46. MEPOLIZUMAB [Suspect]
     Active Substance: MEPOLIZUMAB
     Dosage: 100 MG, Q4W
     Route: 058
  47. MEPOLIZUMAB [Suspect]
     Active Substance: MEPOLIZUMAB
     Route: 058
  48. MEPOLIZUMAB [Suspect]
     Active Substance: MEPOLIZUMAB
     Dosage: 100 MG, QMO
     Route: 042
  49. MEPOLIZUMAB [Suspect]
     Active Substance: MEPOLIZUMAB
     Route: 065
  50. MEPOLIZUMAB [Suspect]
     Active Substance: MEPOLIZUMAB
     Route: 065
  51. SPIRIVA [Suspect]
     Active Substance: TIOTROPIUM BROMIDE MONOHYDRATE
     Indication: Asthma
     Dosage: 3 DOSAGE FORM, QD
     Route: 065
  52. SPIRIVA [Suspect]
     Active Substance: TIOTROPIUM BROMIDE MONOHYDRATE
     Dosage: 2 DOSAGE FORM, QD
     Route: 065
  53. SPIRIVA [Suspect]
     Active Substance: TIOTROPIUM BROMIDE MONOHYDRATE
     Dosage: 3 MG, QD
     Route: 065
  54. SPIRIVA [Suspect]
     Active Substance: TIOTROPIUM BROMIDE MONOHYDRATE
     Dosage: 5 MG, QD
     Route: 065
  55. SPIRIVA [Suspect]
     Active Substance: TIOTROPIUM BROMIDE MONOHYDRATE
     Dosage: 3 DOSAGE FORM, QD
     Route: 065
  56. SPIRIVA [Suspect]
     Active Substance: TIOTROPIUM BROMIDE MONOHYDRATE
     Dosage: 5 MG, QD
     Route: 065
  57. PREDNISONE [Suspect]
     Active Substance: PREDNISONE
     Indication: Addison^s disease
     Dosage: 5 MG, QD
     Route: 065
  58. PREDNISONE [Suspect]
     Active Substance: PREDNISONE
     Indication: Product used for unknown indication
     Route: 065
  59. PREDNISONE [Suspect]
     Active Substance: PREDNISONE
     Dosage: 5 MG, QD
     Route: 065
  60. PREDNISONE [Suspect]
     Active Substance: PREDNISONE
     Dosage: 35 MG, QD
     Route: 065
  61. PREDNISONE [Suspect]
     Active Substance: PREDNISONE
     Route: 065
  62. PREDNISONE [Suspect]
     Active Substance: PREDNISONE
     Dosage: 25 MG, QD
     Route: 065
  63. TIOTROPIUM BROMIDE MONOHYDRATE [Suspect]
     Active Substance: TIOTROPIUM BROMIDE MONOHYDRATE
     Indication: Product used for unknown indication
     Dosage: 5 MG, QD
     Route: 065
  64. TIOTROPIUM BROMIDE MONOHYDRATE [Suspect]
     Active Substance: TIOTROPIUM BROMIDE MONOHYDRATE
     Dosage: 5 MG, QD
     Route: 065
  65. TIOTROPIUM BROMIDE MONOHYDRATE [Suspect]
     Active Substance: TIOTROPIUM BROMIDE MONOHYDRATE
     Dosage: 3 MG, QD
     Route: 065
  66. TIOTROPIUM BROMIDE MONOHYDRATE [Suspect]
     Active Substance: TIOTROPIUM BROMIDE MONOHYDRATE
     Dosage: 3 MG, QD
     Route: 065
  67. TIOTROPIUM BROMIDE MONOHYDRATE [Suspect]
     Active Substance: TIOTROPIUM BROMIDE MONOHYDRATE
     Dosage: 3 MG, QD
     Route: 065
  68. TIOTROPIUM BROMIDE MONOHYDRATE [Suspect]
     Active Substance: TIOTROPIUM BROMIDE MONOHYDRATE
     Dosage: 3 DOSAGE FORM, QD
     Route: 065
  69. TIOTROPIUM BROMIDE MONOHYDRATE [Suspect]
     Active Substance: TIOTROPIUM BROMIDE MONOHYDRATE
     Dosage: 3 DOSAGE FORM, QD
     Route: 065
  70. TIOTROPIUM BROMIDE MONOHYDRATE [Suspect]
     Active Substance: TIOTROPIUM BROMIDE MONOHYDRATE
     Dosage: 5 UG, QD
     Route: 065
  71. TIOTROPIUM BROMIDE MONOHYDRATE [Suspect]
     Active Substance: TIOTROPIUM BROMIDE MONOHYDRATE
     Dosage: 3 UG, QD
     Route: 065
  72. VITAMIN K [Suspect]
     Active Substance: PHYTONADIONE
     Indication: Product used for unknown indication
     Route: 065
  73. MEPOLIZUMAB [Suspect]
     Active Substance: MEPOLIZUMAB
     Indication: Asthma
     Route: 065
  74. MEPOLIZUMAB [Suspect]
     Active Substance: MEPOLIZUMAB
     Route: 042
  75. MEPOLIZUMAB [Suspect]
     Active Substance: MEPOLIZUMAB
     Route: 042
  76. SALICYLIC ACID [Suspect]
     Active Substance: SALICYLIC ACID
     Indication: Product used for unknown indication
     Route: 065
  77. LOSEC [Suspect]
     Active Substance: OMEPRAZOLE
     Indication: Product used for unknown indication
     Route: 065
  78. LOSEC [Suspect]
     Active Substance: OMEPRAZOLE
     Dosage: 20 MG, QD
     Route: 065
  79. LOSEC [Suspect]
     Active Substance: OMEPRAZOLE
     Route: 065
  80. LOSEC [Suspect]
     Active Substance: OMEPRAZOLE
     Dosage: 20 MG, QD
     Route: 065
  81. VITAMIN D [Suspect]
     Active Substance: VITAMIN D NOS
     Indication: Product used for unknown indication
     Dosage: 20000 UG, QD
     Route: 065
  82. VITAMIN D [Suspect]
     Active Substance: VITAMIN D NOS
     Dosage: 20000 UG, QD
     Route: 065
  83. PULMICORT TURBUHALER [Suspect]
     Active Substance: BUDESONIDE
     Indication: Asthma
     Dosage: 2 DOSAGE FORM, BID
     Route: 065
  84. PULMICORT TURBUHALER [Suspect]
     Active Substance: BUDESONIDE
     Dosage: 3 DOSAGE FORM, BID
     Route: 065
  85. PULMICORT TURBUHALER [Suspect]
     Active Substance: BUDESONIDE
     Dosage: 600 MG, BID
     Route: 065
  86. PULMICORT TURBUHALER [Suspect]
     Active Substance: BUDESONIDE
     Dosage: 600 MG, BID
     Route: 065
  87. PULMICORT TURBUHALER [Suspect]
     Active Substance: BUDESONIDE
     Dosage: 2 DOSAGE FORM, BID
     Route: 065
  88. PULMICORT TURBUHALER [Suspect]
     Active Substance: BUDESONIDE
     Dosage: 6 DOSAGE FORM, QD, (3 DOSAGE FORM, BID)
     Route: 065
  89. PULMICORT TURBUHALER [Suspect]
     Active Substance: BUDESONIDE
     Dosage: 600 UG, Q12H
     Route: 065
  90. PULMICORT TURBUHALER [Suspect]
     Active Substance: BUDESONIDE
     Dosage: 3 DOSAGE FORM, Q12H
     Route: 065
  91. PULMICORT TURBUHALER [Suspect]
     Active Substance: BUDESONIDE
     Dosage: 2 DOSAGE FORM, Q12H
     Route: 065
  92. .ALPHA.-TOCOPHEROL, D- [Suspect]
     Active Substance: .ALPHA.-TOCOPHEROL, D-
     Indication: Product used for unknown indication
     Dosage: 400 MG, QD
     Route: 065
  93. .ALPHA.-TOCOPHEROL, D- [Suspect]
     Active Substance: .ALPHA.-TOCOPHEROL, D-
     Route: 065
  94. .ALPHA.-TOCOPHEROL ACETATE, D- [Suspect]
     Active Substance: .ALPHA.-TOCOPHEROL ACETATE, D-
     Indication: Product used for unknown indication
     Dosage: 400 MG, QD
     Route: 065
  95. .ALPHA.-TOCOPHEROL ACETATE, D- [Suspect]
     Active Substance: .ALPHA.-TOCOPHEROL ACETATE, D-
     Route: 065
  96. ALBUTEROL\GUAIFENESIN [Suspect]
     Active Substance: ALBUTEROL\GUAIFENESIN
     Indication: Product used for unknown indication
     Route: 065
  97. DOXYCYCLINE HYCLATE [Suspect]
     Active Substance: DOXYCYCLINE HYCLATE
     Indication: Product used for unknown indication
     Dosage: 100 MG, Q12H
     Route: 065
  98. DOXYCYCLINE HYCLATE [Suspect]
     Active Substance: DOXYCYCLINE HYCLATE
     Dosage: 200 MG, QD
     Route: 065
  99. DOXYCYCLINE HYCLATE [Suspect]
     Active Substance: DOXYCYCLINE HYCLATE
     Dosage: 100 MG, BID
     Route: 065
  100. DOXYCYCLINE HYCLATE [Suspect]
     Active Substance: DOXYCYCLINE HYCLATE
     Dosage: 200 MG, QD
     Route: 065
  101. DOXYCYCLINE HYCLATE [Suspect]
     Active Substance: DOXYCYCLINE HYCLATE
     Dosage: 100 MG, BID
     Route: 065
  102. DOCONEXENT\ICOSAPENT [Suspect]
     Active Substance: DOCONEXENT\ICOSAPENT
     Indication: Product used for unknown indication
     Route: 065
  103. DOCONEXENT\ICOSAPENT [Suspect]
     Active Substance: DOCONEXENT\ICOSAPENT
     Route: 065
  104. CHOLECALCIFEROL [Suspect]
     Active Substance: CHOLECALCIFEROL
     Indication: Product used for unknown indication
     Dosage: 20000 MG, QD
     Route: 065
  105. PREDNISONE ACETATE [Suspect]
     Active Substance: PREDNISONE ACETATE
     Indication: Product used for unknown indication
     Route: 065
  106. SALINE [Suspect]
     Active Substance: SODIUM CHLORIDE
     Indication: Product used for unknown indication
     Route: 065
  107. VITAMIN E [Concomitant]
     Active Substance: .ALPHA.-TOCOPHEROL
     Indication: Product used for unknown indication
     Dosage: 400 UG, QD
     Route: 065
  108. VITAMINS [Concomitant]
     Active Substance: VITAMINS
     Indication: Product used for unknown indication
     Dosage: 2 DF, QD
     Route: 065
  109. CEFTAZIDIME [Concomitant]
     Active Substance: CEFTAZIDIME
     Indication: Product used for unknown indication
     Route: 065
  110. MEROPENEM [Concomitant]
     Active Substance: MEROPENEM
     Indication: Product used for unknown indication
     Route: 042
  111. METHYLPREDNISOLONE [Concomitant]
     Active Substance: METHYLPREDNISOLONE
     Indication: Product used for unknown indication
     Route: 065
  112. PANCREASE MT [Concomitant]
     Active Substance: PANCRELIPASE
     Indication: Product used for unknown indication
     Route: 065
  113. SODIUM CHLORIDE [Concomitant]
     Active Substance: SODIUM CHLORIDE
     Indication: Product used for unknown indication
     Route: 065
  114. VITAMIN K [Concomitant]
     Active Substance: PHYTONADIONE
     Indication: Product used for unknown indication
     Dosage: 10 MG, QD
     Route: 065
  115. .ALPHA.-TOCOPHEROL [Concomitant]
     Active Substance: .ALPHA.-TOCOPHEROL
     Indication: Product used for unknown indication
     Dosage: 400 UG, QD
     Route: 065
  116. VITAMINS NOS [Concomitant]
     Active Substance: VITAMINS
     Indication: Product used for unknown indication
     Dosage: 2 DF, QD
     Route: 065
  117. SODIUM CHLORIDE [Concomitant]
     Active Substance: SODIUM CHLORIDE
     Indication: Product used for unknown indication
     Route: 065
  118. PULMICORT TURBUHALER [Concomitant]
     Active Substance: BUDESONIDE
     Indication: Asthma
     Dosage: 2 DOSAGE FORM, BID
     Route: 065
  119. PULMICORT TURBUHALER [Concomitant]
     Active Substance: BUDESONIDE
     Dosage: 3 DOSAGE FORM, BID
     Route: 065
  120. PULMICORT TURBUHALER [Concomitant]
     Active Substance: BUDESONIDE
     Route: 065
  121. PULMICORT TURBUHALER [Concomitant]
     Active Substance: BUDESONIDE
     Route: 065
  122. PULMICORT TURBUHALER [Concomitant]
     Active Substance: BUDESONIDE
     Dosage: 2 DOSAGE FORM, BID
     Route: 065
  123. PULMICORT TURBUHALER [Concomitant]
     Active Substance: BUDESONIDE
     Dosage: 3 DOSAGE FORM, BID
     Route: 065
  124. PANCRELIPASE [Concomitant]
     Active Substance: PANCRELIPASE
     Indication: Product used for unknown indication
     Route: 065

REACTIONS (8)
  - Sleep disorder due to a general medical condition [Not Recovered/Not Resolved]
  - Productive cough [Not Recovered/Not Resolved]
  - Infection [Not Recovered/Not Resolved]
  - Wheezing [Not Recovered/Not Resolved]
  - Asthma [Not Recovered/Not Resolved]
  - Dyspnoea [Not Recovered/Not Resolved]
  - Addison^s disease [Not Recovered/Not Resolved]
  - Therapeutic product effect incomplete [Not Recovered/Not Resolved]
